FAERS Safety Report 10201268 (Version 1)
Quarter: 2014Q2

REPORT INFORMATION
  Report Type: Spontaneous
  Country: US (occurrence: US)
  Receive Date: 20140528
  Receipt Date: 20140528
  Transmission Date: 20141212
  Serious: No
  Sender: FDA-Public Use
  Company Number: US-009507513-1405USA011335

PATIENT
  Age: 9 Year
  Sex: Female

DRUGS (2)
  1. NASONEX [Suspect]
     Indication: RHINITIS ALLERGIC
     Dosage: 1 DF, QD REGULARLY ONCE PER DAY
     Route: 045
     Dates: start: 20140430
  2. NASONEX [Suspect]
     Dosage: 1 DF, QD, INTERMITTENTLY ONE SPRAY IN EACH NOSTRIL
     Route: 045
     Dates: start: 201205

REACTIONS (2)
  - Dizziness [Not Recovered/Not Resolved]
  - Headache [Not Recovered/Not Resolved]
